FAERS Safety Report 4547295-1 (Version None)
Quarter: 2005Q1

REPORT INFORMATION
  Report Type: 
  Country: None (occurrence: None)
  Receive Date: 20050105
  Receipt Date: 20041228
  Transmission Date: 20050727
  Serious: Yes (Death)
  Sender: FDA-Public Use
  Company Number: USA-2004-0017953

PATIENT
  Age: 49 Year
  Sex: Male
  Weight: 110.7 kg

DRUGS (7)
  1. SPECTRACEF [Suspect]
     Indication: BRONCHITIS CHRONIC
     Dosage: 400 MG, BID
     Route: 048
     Dates: start: 20041116, end: 20041101
  2. PROTONIX [Concomitant]
  3. REGLAN [Concomitant]
  4. LISINOPRIL [Concomitant]
  5. WELLBUTRIN [Concomitant]
  6. ADVANDAMET                (ROSIGLITAZONE) [Concomitant]
  7. LOTEMAX (LOTEPREDNOL ETABONATE) [Concomitant]

REACTIONS (6)
  - ARRHYTHMIA [None]
  - CARDIAC ARREST [None]
  - CORONARY ARTERY DISEASE [None]
  - HYPERHIDROSIS [None]
  - PALPITATIONS [None]
  - VENTRICULAR HYPERTROPHY [None]
